FAERS Safety Report 4318313-0 (Version None)
Quarter: 2004Q1

REPORT INFORMATION
  Report Type: 
  Country: None (occurrence: None)
  Receive Date: 20040315
  Receipt Date: 20040302
  Transmission Date: 20041129
  Serious: Yes (Hospitalization, Other)
  Sender: FDA-Public Use
  Company Number: 2004014284

PATIENT
  Age: 57 Year
  Sex: Female
  Weight: 61.2356 kg

DRUGS (6)
  1. NARDIL [Suspect]
     Indication: AFFECTIVE DISORDER
     Dosage: 15 MG (DAILY), ORAL
     Route: 048
     Dates: start: 19860101
  2. ALL OTHER THERAPEUTIC PRODUCTS [Suspect]
     Indication: ILL-DEFINED DISORDER
     Dates: start: 20030101
  3. RISPERIDONE [Concomitant]
  4. ESTRADIOL [Concomitant]
  5. DIAZEPAM [Concomitant]
  6. PROPACET (PARACETAMOL, DEXTROPROXYPHENE NAPSILATE) [Concomitant]

REACTIONS (3)
  - DRUG INEFFECTIVE [None]
  - EMOTIONAL DISORDER [None]
  - SUICIDAL IDEATION [None]
